FAERS Safety Report 5087186-3 (Version None)
Quarter: 2006Q3

REPORT INFORMATION
  Report Type: 
  Country: None (occurrence: None)
  Receive Date: 20060821
  Receipt Date: 20060810
  Transmission Date: 20061208
  Serious: Yes (Life-Threatening)
  Sender: FDA-Public Use
  Company Number: 2006-02096

PATIENT
  Age: 61 Year
  Sex: Female

DRUGS (1)
  1. VELCADE [Suspect]
     Indication: MULTIPLE MYELOMA
     Dosage: 1.50 MG/M2, INTRAVENOUS
     Route: 042

REACTIONS (2)
  - DIARRHOEA [None]
  - NEUTROPENIA [None]
